FAERS Safety Report 9643127 (Version 1)
Quarter: 2013Q4

REPORT INFORMATION
  Report Type: Spontaneous
  Country: JP (occurrence: JP)
  Receive Date: 20131024
  Receipt Date: 20131024
  Transmission Date: 20140711
  Serious: Yes (Other)
  Sender: FDA-Public Use
  Company Number: JP-ASTELLAS-2013US011156

PATIENT
  Age: 76 Year
  Sex: Female

DRUGS (1)
  1. AMBISOME [Suspect]
     Indication: FEBRILE NEUTROPENIA
     Dosage: 150 MG, UNKNOWN/D
     Route: 065

REACTIONS (2)
  - Cardiac failure [Unknown]
  - Blood potassium decreased [Unknown]
